FAERS Safety Report 19237294 (Version 1)
Quarter: 2021Q2

REPORT INFORMATION
  Report Type: Spontaneous
  Country: CN (occurrence: CN)
  Receive Date: 20210510
  Receipt Date: 20210510
  Transmission Date: 20210717
  Serious: Yes (Life-Threatening, Hospitalization, Other)
  Sender: FDA-Public Use
  Company Number: CN-LUPIN PHARMACEUTICALS INC.-2021-06442

PATIENT
  Age: 8 Year
  Sex: Male

DRUGS (6)
  1. ARBIDOL [Suspect]
     Active Substance: UMIFENOVIR
     Indication: COVID-19
     Dosage: UNK
     Route: 065
     Dates: start: 2020
  2. LINEZOLID. [Suspect]
     Active Substance: LINEZOLID
     Indication: COVID-19
     Dosage: UNK
     Route: 065
     Dates: start: 2020
  3. CASPOFUNGIN [Suspect]
     Active Substance: CASPOFUNGIN
     Indication: COVID-19
     Dosage: UNK
     Route: 065
     Dates: start: 2020
  4. IMMUNE GLOBULIN (IMMUNOGLOBULINS NOS) [Suspect]
     Active Substance: IMMUNE GLOBULIN NOS
     Indication: COVID-19
     Dosage: UNK
     Route: 042
     Dates: start: 2020
  5. MEROPENEM. [Suspect]
     Active Substance: MEROPENEM
     Indication: COVID-19
     Dosage: UNK
     Route: 065
     Dates: start: 2020
  6. RIBAVIRIN. [Suspect]
     Active Substance: RIBAVIRIN
     Indication: COVID-19
     Dosage: UNK
     Route: 065
     Dates: start: 2020

REACTIONS (3)
  - Acute kidney injury [Recovering/Resolving]
  - Off label use [Unknown]
  - Fluid overload [Recovering/Resolving]

NARRATIVE: CASE EVENT DATE: 2020
